FAERS Safety Report 23019627 (Version 5)
Quarter: 2023Q4

REPORT INFORMATION
  Report Type: Report from Study
  Country: US (occurrence: US)
  Receive Date: 20231003
  Receipt Date: 20231018
  Transmission Date: 20240109
  Serious: No
  Sender: FDA-Public Use
  Company Number: US-002147023-NVSC2023US210627

PATIENT
  Sex: Male
  Weight: 90.72 kg

DRUGS (5)
  1. TRIAMCINOLONE ACETONIDE [Suspect]
     Active Substance: TRIAMCINOLONE ACETONIDE
     Indication: Psoriasis
     Dosage: UNK
     Route: 065
  2. COSENTYX [Suspect]
     Active Substance: SECUKINUMAB
     Indication: Psoriasis
     Dosage: UNK
     Route: 065
  3. CLOBETASOL [Suspect]
     Active Substance: CLOBETASOL
     Indication: Psoriasis
     Dosage: UNK
     Route: 065
  4. KETOCONAZOLE [Suspect]
     Active Substance: KETOCONAZOLE
     Indication: Psoriasis
     Dosage: UNK
     Route: 065
  5. FLUOCINONIDE [Suspect]
     Active Substance: FLUOCINONIDE
     Indication: Psoriasis
     Dosage: UNK
     Route: 065

REACTIONS (12)
  - Psoriasis [Unknown]
  - Rash [Unknown]
  - Skin exfoliation [Unknown]
  - Pruritus [Unknown]
  - Arthralgia [Unknown]
  - Papule [Unknown]
  - Skin plaque [Unknown]
  - Nodule [Unknown]
  - Skin burning sensation [Unknown]
  - Dry skin [Unknown]
  - Seborrhoeic dermatitis [Unknown]
  - Drug ineffective [Unknown]
